FAERS Safety Report 6611953-5 (Version None)
Quarter: 2010Q1

REPORT INFORMATION
  Report Type: 
  Country: None (occurrence: None)
  Receive Date: 20100225
  Receipt Date: 20100212
  Transmission Date: 20100710
  Serious: Yes (Other)
  Sender: FDA-Public Use
  Company Number: OSCN-PR-0710S-0427

PATIENT
  Sex: Male

DRUGS (1)
  1. GADOLINIUM (UNSPECIFIED) [Suspect]
     Indication: DRUG USE FOR UNKNOWN INDICATION
     Dosage: MULTIPLE ADMINISTRATIONS, I.V.
     Route: 042
     Dates: start: 19970101

REACTIONS (1)
  - NEPHROGENIC SYSTEMIC FIBROSIS [None]
